FAERS Safety Report 5262080-3 (Version None)
Quarter: 2007Q1

REPORT INFORMATION
  Report Type: 
  Country: None (occurrence: None)
  Receive Date: 20070311
  Receipt Date: 20070228
  Transmission Date: 20070707
  Serious: Yes (Hospitalization, Other)
  Sender: FDA-Public Use
  Company Number: 2007UW04547

PATIENT
  Sex: Female
  Weight: 129.5 kg

DRUGS (5)
  1. SEROQUEL [Suspect]
     Indication: MENTAL DISORDER
     Route: 048
     Dates: start: 19990101, end: 20060901
  2. ABILIFY [Concomitant]
     Dosage: 5 OR 10 MG
     Dates: start: 20040101
  3. GEODON [Concomitant]
     Dosage: 40-60 MG
     Dates: start: 20040101
  4. HALDOL [Concomitant]
     Dates: start: 20010101
  5. RISPERDAL [Concomitant]
     Dates: start: 20061101

REACTIONS (5)
  - BREAST MASS [None]
  - DEPRESSION [None]
  - DIABETES MELLITUS [None]
  - DIABETIC KETOACIDOSIS [None]
  - SCHIZOPHRENIA [None]
